FAERS Safety Report 7341570-3 (Version None)
Quarter: 2011Q1

REPORT INFORMATION
  Report Type: 
  Country: None (occurrence: None)
  Receive Date: 20110309
  Receipt Date: 20110209
  Transmission Date: 20110831
  Serious: No
  Sender: FDA-Public Use
  Company Number: US-B.I. PHARMACEUTICALS,INC./RIDGEFIELD-2010-BP-07750BP

PATIENT
  Sex: Male

DRUGS (2)
  1. AZILECT [Concomitant]
     Dosage: 1 MG
  2. MIRAPEX [Suspect]
     Indication: PARKINSON'S DISEASE
     Dosage: 1.5 MG
     Route: 048
     Dates: start: 20101001, end: 20101026

REACTIONS (3)
  - OBSESSIVE-COMPULSIVE DISORDER [None]
  - HYPERSEXUALITY [None]
  - IMPULSE-CONTROL DISORDER [None]
